FAERS Safety Report 19750469 (Version 1)
Quarter: 2021Q3

REPORT INFORMATION
  Report Type: Spontaneous
  Country: US (occurrence: US)
  Receive Date: 20210826
  Receipt Date: 20210826
  Transmission Date: 20211014
  Serious: Yes (Death)
  Sender: FDA-Public Use
  Company Number: None

PATIENT
  Age: 70 Year
  Sex: Male
  Weight: 100 kg

DRUGS (1)
  1. TOCILIZUMAB (TOCILIZUMAB 20MG/ML INJ,SOLN,20ML) [Suspect]
     Active Substance: TOCILIZUMAB
     Indication: UPPER RESPIRATORY TRACT INFECTION
     Route: 042
     Dates: start: 20210818, end: 20210818

REACTIONS (6)
  - Hepatic enzyme increased [None]
  - Blood urea increased [None]
  - Hyperglycaemia [None]
  - Hypotension [None]
  - Hypoxia [None]
  - Blood creatinine increased [None]

NARRATIVE: CASE EVENT DATE: 20210820
